FAERS Safety Report 8809729 (Version 1)
Quarter: 2012Q4

REPORT INFORMATION
  Report Type: 
  Country: US (occurrence: US)
  Receive Date: 20120926
  Receipt Date: 20120926
  Transmission Date: 20130627
  Serious: Yes (Death, Other)
  Sender: FDA-Public Use
  Company Number: US-ROCHE-1104075

PATIENT
  Sex: Male

DRUGS (1)
  1. AVASTIN [Suspect]
     Indication: PANCREATIC CARCINOMA
     Route: 065

REACTIONS (10)
  - Death [Fatal]
  - Pain [Unknown]
  - Rash [Unknown]
  - Weight decreased [Unknown]
  - Decreased appetite [Unknown]
  - Fatigue [Unknown]
  - Diarrhoea [Unknown]
  - White blood cell count increased [Unknown]
  - Bacteriuria [Unknown]
  - Viral infection [Unknown]
